FAERS Safety Report 5831947-7 (Version None)
Quarter: 2008Q3

REPORT INFORMATION
  Report Type: 
  Country: None (occurrence: None)
  Receive Date: 20080804
  Receipt Date: 20080703
  Transmission Date: 20090109
  Serious: No
  Sender: FDA-Public Use
  Company Number: US-BAYER-200827777NA

PATIENT
  Sex: Female

DRUGS (7)
  1. AVELOX [Suspect]
     Indication: DRUG USE FOR UNKNOWN INDICATION
     Route: 048
     Dates: start: 20080623, end: 20080702
  2. AMITRIPTYLINE HCL [Concomitant]
  3. CLONOPIN [Concomitant]
  4. EFFEXOR [Concomitant]
  5. VITAMIN B [Concomitant]
  6. FUROSEMIDE [Concomitant]
  7. HYDROCODONE BITARTRATE [Concomitant]

REACTIONS (2)
  - RASH GENERALISED [None]
  - URTICARIA [None]
